FAERS Safety Report 5451100-9 (Version None)
Quarter: 2007Q3

REPORT INFORMATION
  Report Type: 
  Country: None (occurrence: None)
  Receive Date: 20070911
  Receipt Date: 20070828
  Transmission Date: 20080115
  Serious: Yes (Hospitalization)
  Sender: FDA-Public Use
  Company Number: S07-DEN-03265-01

PATIENT
  Age: 59 Year
  Sex: Female
  Weight: 60 kg

DRUGS (3)
  1. AKARIN                      (CITALOPRAM) [Suspect]
     Indication: DEPRESSION
     Dosage: 15 MG QD PO
     Route: 048
     Dates: end: 20070605
  2. AKARIN                    (CITALOPRAM) [Suspect]
     Indication: DEPRESSION
     Dosage: 10 MG QD PO
     Route: 048
     Dates: start: 20070606, end: 20070613
  3. CITALOPRAM HYDROBROMIDE [Concomitant]

REACTIONS (6)
  - DIZZINESS [None]
  - HEPATIC CYST [None]
  - HEPATITIS TOXIC [None]
  - MALAISE [None]
  - THERAPEUTIC RESPONSE UNEXPECTED WITH DRUG SUBSTITUTION [None]
  - WEIGHT DECREASED [None]
